FAERS Safety Report 22235566 (Version 1)
Quarter: 2023Q2

REPORT INFORMATION
  Report Type: Report from Study
  Country: IT (occurrence: IT)
  Receive Date: 20230420
  Receipt Date: 20230420
  Transmission Date: 20230722
  Serious: Yes (Hospitalization)
  Sender: FDA-Public Use
  Company Number: None

PATIENT
  Age: 23 Year
  Sex: Female
  Weight: 80 kg

DRUGS (3)
  1. DROSPIRENONE [Suspect]
     Active Substance: DROSPIRENONE
     Indication: Oral contraception
     Dosage: 1 DF
     Route: 048
     Dates: start: 20210601, end: 20221013
  2. TIROSINT [Concomitant]
     Active Substance: LEVOTHYROXINE SODIUM
     Indication: Hypothyroidism
     Dosage: DOSAGGIO: 5UNITA DI MISURA: UNITA POSOLOGICAVIA SOMMINISTRAZIONE: ORALE
     Route: 048
  3. LAMIVUDINE [Concomitant]
     Active Substance: LAMIVUDINE
     Indication: Chronic hepatitis B
     Dosage: DOSAGGIO: 1UNITA DI MISURA: UNITA POSOLOGICAVIA SOMMINISTRAZIONE: ORALE

REACTIONS (3)
  - Haemolytic anaemia [Recovering/Resolving]
  - Jaundice [Recovering/Resolving]
  - Chromaturia [Recovered/Resolved]

NARRATIVE: CASE EVENT DATE: 20221011
